FAERS Safety Report 10198784 (Version 2)
Quarter: 2014Q2

REPORT INFORMATION
  Report Type: Spontaneous
  Country: DZ (occurrence: DZ)
  Receive Date: 20140527
  Receipt Date: 20140604
  Transmission Date: 20141212
  Serious: Yes (Other)
  Sender: FDA-Public Use
  Company Number: DZ-SA-2014SA066772

PATIENT
  Sex: Female

DRUGS (2)
  1. TAXOTERE [Suspect]
     Indication: BREAST CANCER
     Dosage: DOSE:100MG/M3?ROUTE :PERFUSION
     Dates: start: 20140422, end: 20140422
  2. TAXOTERE [Suspect]
     Indication: BREAST CANCER

REACTIONS (3)
  - Aplasia [Recovered/Resolved]
  - Mouth ulceration [Recovered/Resolved]
  - Thermal burn [Recovered/Resolved]
